FAERS Safety Report 8948920 (Version 1)
Quarter: 2012Q4

REPORT INFORMATION
  Report Type: 
  Country: US (occurrence: US)
  Receive Date: 20121206
  Receipt Date: 20121206
  Transmission Date: 20130627
  Serious: No
  Sender: FDA-Public Use
  Company Number: US-BIOGENIDEC-2012BI035102

PATIENT
  Age: 56 Year
  Sex: Female

DRUGS (1)
  1. AVONEX [Suspect]
     Indication: MULTIPLE SCLEROSIS
     Route: 030
     Dates: start: 20120829

REACTIONS (5)
  - Adverse event [Recovered/Resolved]
  - Eye pain [Recovered/Resolved]
  - Pain [Not Recovered/Not Resolved]
  - Myalgia [Recovered/Resolved]
  - Chills [Recovered/Resolved]
